FAERS Safety Report 4944046-3 (Version None)
Quarter: 2006Q1

REPORT INFORMATION
  Report Type: 
  Country: None (occurrence: None)
  Receive Date: 20060315
  Receipt Date: 20051212
  Transmission Date: 20060701
  Serious: Yes (Hospitalization)
  Sender: FDA-Public Use
  Company Number: US-JNJFOC-20060303018

PATIENT
  Sex: Female
  Weight: 49.9 kg

DRUGS (1)
  1. DURAGESIC-100 [Suspect]
     Route: 062

REACTIONS (3)
  - FALL [None]
  - PAIN [None]
  - PNEUMOTHORAX TRAUMATIC [None]
